FAERS Safety Report 18225822 (Version 1)
Quarter: 2020Q3

REPORT INFORMATION
  Report Type: Spontaneous
  Country: US (occurrence: US)
  Receive Date: 20200903
  Receipt Date: 20200903
  Transmission Date: 20201103
  Serious: No
  Sender: FDA-Public Use
  Company Number: US-JNJFOC-20200838019

PATIENT

DRUGS (1)
  1. MENS ROGAINE EXTRA STRENGTH [Suspect]
     Active Substance: MINOXIDIL
     Indication: PRODUCT USED FOR UNKNOWN INDICATION
     Route: 065
     Dates: start: 202007

REACTIONS (5)
  - Heart rate irregular [Unknown]
  - Paraesthesia [Unknown]
  - Chest pain [Unknown]
  - Dizziness [Unknown]
  - Heart rate increased [Unknown]

NARRATIVE: CASE EVENT DATE: 202007
